FAERS Safety Report 18773478 (Version 1)
Quarter: 2021Q1

REPORT INFORMATION
  Report Type: Spontaneous
  Country: US (occurrence: US)
  Receive Date: 20210122
  Receipt Date: 20210122
  Transmission Date: 20210419
  Serious: Yes (Hospitalization)
  Sender: FDA-Public Use
  Company Number: None

PATIENT
  Sex: Female
  Weight: 27.3 kg

DRUGS (1)
  1. METHOTREXATE. [Suspect]
     Active Substance: METHOTREXATE

REACTIONS (9)
  - Crying [None]
  - Urinary incontinence [None]
  - Electroencephalogram abnormal [None]
  - Status epilepticus [None]
  - Muscle twitching [None]
  - Mental status changes [None]
  - Speech disorder [None]
  - Asocial behaviour [None]
  - Neurotoxicity [None]

NARRATIVE: CASE EVENT DATE: 20210109
